FAERS Safety Report 13483430 (Version 1)
Quarter: 2017Q2

REPORT INFORMATION
  Report Type: Report from Study
  Country: MX (occurrence: MX)
  Receive Date: 20170424
  Receipt Date: 20170424
  Transmission Date: 20170830
  Serious: Yes (Other)
  Sender: FDA-Public Use
  Company Number: PHHY2017MX060379

PATIENT
  Age: 79 Year
  Sex: Male

DRUGS (5)
  1. NORVASC [Concomitant]
     Active Substance: AMLODIPINE BESYLATE
     Indication: PROPHYLAXIS
     Dosage: 0.5 DF, QD
     Route: 065
  2. CO-DIOVAN [Suspect]
     Active Substance: HYDROCHLOROTHIAZIDE\VALSARTAN
     Indication: HYPERTENSION
     Dosage: 2 DF (HYDROCHLOROTHIAZIDE 12.5/VALSARTAN 160 MG), 1 IN THE MORNING AND 1 IN THE AFTERNOON
     Route: 065
  3. CO-DIOVAN [Suspect]
     Active Substance: HYDROCHLOROTHIAZIDE\VALSARTAN
     Dosage: 1 DF (HYDROCHLOROTHIAZIDE 12.5/VALSARTAN 160 MG), IN THE MORNING
     Route: 065
  4. DIOVAN [Suspect]
     Active Substance: VALSARTAN
     Indication: HYPERTENSION
     Dosage: 1 DF, IN THE AFTERNOON
     Route: 065
  5. DABEX [Concomitant]
     Indication: DIABETES PROPHYLAXIS
     Dosage: 750 OT, UNK
     Route: 065

REACTIONS (9)
  - Abnormal sensation in eye [Unknown]
  - Inappropriate schedule of drug administration [Unknown]
  - Intraocular pressure increased [Unknown]
  - Lacrimation increased [Unknown]
  - Glucose tolerance test abnormal [Unknown]
  - Eye irritation [Unknown]
  - Cataract [Unknown]
  - Glaucoma [Unknown]
  - Blood calcium increased [Unknown]

NARRATIVE: CASE EVENT DATE: 201609
